FAERS Safety Report 9117208 (Version 1)
Quarter: 2013Q1

REPORT INFORMATION
  Report Type: Spontaneous
  Country: US (occurrence: US)
  Receive Date: 20130225
  Receipt Date: 20130225
  Transmission Date: 20140127
  Serious: No
  Sender: FDA-Public Use
  Company Number: US-009507513-1302USA009753

PATIENT
  Sex: Female
  Weight: 66 kg

DRUGS (3)
  1. NUVARING [Suspect]
     Indication: CONTRACEPTION
     Dosage: 3 WEEK RING
     Route: 067
     Dates: start: 2012, end: 201302
  2. NUVARING [Suspect]
     Dosage: 3 WEEK RING
     Route: 067
     Dates: start: 201206
  3. NUVARING [Suspect]
     Dosage: 3 WEEK RING
     Route: 067
     Dates: start: 201302

REACTIONS (6)
  - Crying [Recovered/Resolved]
  - Mood altered [Recovered/Resolved]
  - Nausea [Recovered/Resolved]
  - Breast tenderness [Recovered/Resolved]
  - Asthenia [Recovered/Resolved]
  - Depressed mood [Recovered/Resolved]
